FAERS Safety Report 7772710-X (Version None)
Quarter: 2011Q3

REPORT INFORMATION
  Report Type: 
  Country: None (occurrence: None)
  Receive Date: 20110922
  Receipt Date: 20100311
  Transmission Date: 20111222
  Serious: No
  Sender: FDA-Public Use
  Company Number: US-ASTRAZENECA-2008UW24319

PATIENT
  Age: 59 Year
  Sex: Male
  Weight: 136.1 kg

DRUGS (13)
  1. TRAZODONE HYDROCHLORIDE [Concomitant]
     Dosage: 50 TO 100 MG
     Dates: start: 20031025
  2. LIPITOR [Concomitant]
     Indication: BLOOD CHOLESTEROL INCREASED
     Dates: start: 20030101
  3. ZYPREXA [Concomitant]
     Dates: start: 20040506
  4. SEROQUEL [Suspect]
     Indication: DEPRESSION
     Route: 048
     Dates: start: 20020101
  5. HYDROCHLOROTHIAZIDE [Concomitant]
     Dates: start: 20041025
  6. EFFEXOR [Concomitant]
     Dates: start: 20040413
  7. ALPRAZOLAM [Concomitant]
     Dates: start: 20020920
  8. NORVASC [Concomitant]
     Dates: start: 20030421
  9. SEROQUEL [Suspect]
     Dosage: 25 TO 200 MG
     Route: 048
     Dates: start: 20040526
  10. LIPITOR [Concomitant]
     Indication: HYPERLIPIDAEMIA
     Dates: start: 20030101
  11. LIPITOR [Concomitant]
     Indication: BLOOD TRIGLYCERIDES INCREASED
     Dates: start: 20030101
  12. LORAZEPAM [Concomitant]
     Dates: start: 20040219
  13. DEPAKOTE [Concomitant]
     Dosage: 250 TO 500 MG
     Dates: start: 20040506

REACTIONS (6)
  - BLOOD CHOLESTEROL INCREASED [None]
  - BLOOD TRIGLYCERIDES INCREASED [None]
  - TYPE 2 DIABETES MELLITUS [None]
  - HYPERGLYCAEMIA [None]
  - HYPERLIPIDAEMIA [None]
  - OBESITY [None]
